FAERS Safety Report 4632447-2 (Version None)
Quarter: 2005Q2

REPORT INFORMATION
  Report Type: 
  Country: None (occurrence: None)
  Receive Date: 20050411
  Receipt Date: 20041119
  Transmission Date: 20051028
  Serious: Yes (Hospitalization)
  Sender: FDA-Public Use
  Company Number: US-BRISTOL-MYERS SQUIBB COMPANY-12771929

PATIENT

DRUGS (1)
  1. CARDIOLITE [Suspect]
     Dates: start: 20041015, end: 20041015

REACTIONS (1)
  - HEPATITIS C [None]
